FAERS Safety Report 5081039-2 (Version None)
Quarter: 2006Q3

REPORT INFORMATION
  Report Type: 
  Country: None (occurrence: None)
  Receive Date: 20060810
  Receipt Date: 20060728
  Transmission Date: 20061208
  Serious: Yes (Death, Hospitalization)
  Sender: FDA-Public Use
  Company Number: 2006BH012285

PATIENT
  Age: 48 Year
  Sex: Male

DRUGS (4)
  1. HEPARIN SODIUM [Suspect]
     Indication: PULMONARY EMBOLISM
     Dates: start: 20060513
  2. GLIADEL [Suspect]
     Indication: GLIOBLASTOMA MULTIFORME
     Dosage: ICER
     Dates: start: 20060502, end: 20060514
  3. GLIASITE BALLOON WITH SALINE [Suspect]
     Indication: GLIOBLASTOMA MULTIFORME
     Dosage: ICER
     Dates: start: 20060502, end: 20060514
  4. STEROIDS [Concomitant]

REACTIONS (4)
  - BRAIN OEDEMA [None]
  - CEREBRAL HAEMATOMA [None]
  - DEEP VEIN THROMBOSIS [None]
  - PULMONARY EMBOLISM [None]
